FAERS Safety Report 13544876 (Version 2)
Quarter: 2017Q4

REPORT INFORMATION
  Report Type: Report from Study
  Country: AU (occurrence: AU)
  Receive Date: 20170515
  Receipt Date: 20171031
  Transmission Date: 20180320
  Serious: Yes (Death, Other)
  Sender: FDA-Public Use
  Company Number: AU-TOLMAR, INC.-2017AU005980

PATIENT
  Sex: Male

DRUGS (1)
  1. ELIGARD [Suspect]
     Active Substance: LEUPROLIDE ACETATE
     Indication: PROSTATE CANCER
     Dosage: 45 MG, EVERY 6 MONTHS
     Route: 065
     Dates: start: 20151116

REACTIONS (3)
  - Urinary tract obstruction [Unknown]
  - Death [Fatal]
  - Wound infection [Unknown]
